FAERS Safety Report 8296201-5 (Version None)
Quarter: 2012Q2

REPORT INFORMATION
  Report Type: 
  Country: None (occurrence: None)
  Receive Date: 20120418
  Receipt Date: 20120410
  Transmission Date: 20120825
  Serious: Yes (Hospitalization)
  Sender: FDA-Public Use
  Company Number: IT-ELI_LILLY_AND_COMPANY-IT201204003132

PATIENT
  Sex: Male

DRUGS (2)
  1. HUMALOG [Suspect]
     Indication: DIABETES MELLITUS
     Dosage: 8 IU, TOTAL
     Route: 058
     Dates: start: 20111125, end: 20111225
  2. LANTUS [Concomitant]
     Indication: DIABETES MELLITUS
     Dosage: 30 IU, TOTAL
     Route: 058
     Dates: start: 20111125, end: 20111225

REACTIONS (3)
  - ABNORMAL BEHAVIOUR [None]
  - MEDICATION ERROR [None]
  - HYPOGLYCAEMIA [None]
